FAERS Safety Report 17769873 (Version 1)
Quarter: 2020Q2

REPORT INFORMATION
  Report Type: Spontaneous
  Country: US (occurrence: US)
  Receive Date: 20200511
  Receipt Date: 20200511
  Transmission Date: 20200714
  Serious: Yes (Hospitalization)
  Sender: FDA-Public Use
  Company Number: None

PATIENT
  Age: 6 Year
  Sex: Female

DRUGS (11)
  1. CREON [Concomitant]
     Active Substance: PANCRELIPASE AMYLASE\PANCRELIPASE LIPASE\PANCRELIPASE PROTEASE
  2. AQUADEKS [Concomitant]
     Active Substance: MINERALS\VITAMINS
  3. CIPROFLOXACN [Concomitant]
     Active Substance: CIPROFLOXACIN
  4. ERGOCALCIFER [Concomitant]
  5. CAYSTON [Concomitant]
     Active Substance: AZTREONAM
  6. FAMOTIDINE. [Concomitant]
     Active Substance: FAMOTIDINE
  7. POLYETH GLYC [Concomitant]
     Active Substance: POLYETHYLENE GLYCOLS
  8. PROAIR HFA [Concomitant]
     Active Substance: ALBUTEROL SULFATE
  9. SODIUM CHLOR NEB 7%(4MLX60 [Concomitant]
     Active Substance: SODIUM CHLORIDE
  10. FLUTICASONE. [Concomitant]
     Active Substance: FLUTICASONE
  11. PULMOZYME [Suspect]
     Active Substance: DORNASE ALFA
     Indication: CYSTIC FIBROSIS
     Route: 055
     Dates: start: 20200220

REACTIONS (2)
  - Vomiting [None]
  - Blood potassium decreased [None]

NARRATIVE: CASE EVENT DATE: 20200420
